FAERS Safety Report 6072062-X (Version None)
Quarter: 2009Q1

REPORT INFORMATION
  Report Type: 
  Country: None (occurrence: None)
  Receive Date: 20090210
  Receipt Date: 20090206
  Transmission Date: 20090719
  Serious: Yes (Other)
  Sender: FDA-Public Use
  Company Number: BE-ASTRAZENECA-2008AC01484

PATIENT
  Age: 204 Month
  Sex: Female
  Weight: 63.5 kg

DRUGS (5)
  1. SEROQUEL [Suspect]
     Indication: HALLUCINATION
     Route: 048
     Dates: start: 20070910
  2. SEROQUEL [Suspect]
     Route: 048
  3. SOLIAN [Concomitant]
     Indication: HALLUCINATION
     Route: 048
     Dates: start: 20070131
  4. SOLIAN [Concomitant]
     Route: 048
     Dates: start: 20070910
  5. PROVIGIL [Concomitant]
     Indication: SLEEP DISORDER
     Dates: start: 20070702

REACTIONS (3)
  - LEUKOPENIA [None]
  - NEUTROPENIA [None]
  - SOMNOLENCE [None]
